FAERS Safety Report 8875435 (Version 2)
Quarter: 2012Q4

REPORT INFORMATION
  Report Type: 
  Country: JP (occurrence: JP)
  Receive Date: 20121023
  Receipt Date: 20121227
  Transmission Date: 20130627
  Serious: Yes (Life-Threatening, Hospitalization, Other)
  Sender: FDA-Public Use
  Company Number: JP-VERTEX PHARMACEUTICAL INC.-2012-023366

PATIENT
  Age: 68 Year
  Sex: Female

DRUGS (9)
  1. TELAVIC [Suspect]
     Indication: CHRONIC HEPATITIS C
     Dosage: 1500 mg, qd
     Route: 048
     Dates: start: 20120710, end: 20120819
  2. TELAVIC [Suspect]
     Dosage: 1250 mg, qd
     Route: 048
     Dates: start: 20120820, end: 20120930
  3. RIBAVIRIN [Suspect]
     Indication: CHRONIC HEPATITIS C
     Dosage: 600 mg, qd
     Route: 048
     Dates: start: 20120710, end: 20120805
  4. RIBAVIRIN [Suspect]
     Dosage: 400 mg, qd
     Route: 048
     Dates: start: 20120806, end: 20121122
  5. PEGINTERFERON ALFA-2B [Suspect]
     Indication: CHRONIC HEPATITIS C
     Dosage: 1.3 ?g/kg, qw
     Route: 058
     Dates: start: 20120710
  6. PEGINTERFERON ALFA-2B [Suspect]
     Dosage: 1.0 ?g/kg, qw
     Route: 058
     Dates: start: 20120903, end: 20121022
  7. URSODESOXYCHOLIC ACID [Concomitant]
     Dosage: 600 mg, qd
     Route: 048
     Dates: end: 20121123
  8. NORVASC [Concomitant]
     Dosage: 2.5 mg, qd
     Route: 048
     Dates: end: 20121024
  9. MUCOSTA [Concomitant]
     Dosage: 300 mg, qd
     Route: 048
     Dates: end: 20121024

REACTIONS (7)
  - Aortic dissection [Recovered/Resolved]
  - White blood cell count decreased [Not Recovered/Not Resolved]
  - Anaemia [Not Recovered/Not Resolved]
  - Renal disorder [Not Recovered/Not Resolved]
  - Cough [Not Recovered/Not Resolved]
  - Platelet count decreased [Not Recovered/Not Resolved]
  - Hyperuricaemia [Not Recovered/Not Resolved]
